FAERS Safety Report 9685094 (Version 2)
Quarter: 2013Q4

REPORT INFORMATION
  Report Type: Spontaneous
  Country: IT (occurrence: IT)
  Receive Date: 20131113
  Receipt Date: 20131121
  Transmission Date: 20140711
  Serious: Yes (Hospitalization)
  Sender: FDA-Public Use
  Company Number: IT-RANBAXY-2013RR-74887

PATIENT
  Age: 39 Year
  Sex: Female

DRUGS (5)
  1. NIMESULIDE [Suspect]
     Indication: TOOTHACHE
     Dosage: 1 DF, COMPLETE
     Route: 048
     Dates: start: 20130903, end: 20130903
  2. AMOXICILLIN\CLAVULANATE POTASSIUM [Suspect]
     Indication: TOOTH EXTRACTION
     Dosage: 2 DF, COMPLETE
     Route: 048
     Dates: start: 20130910, end: 20130910
  3. OKI [Suspect]
     Indication: TOOTHACHE
     Dosage: 1 DF, COMPLETE
     Route: 048
     Dates: start: 20130903, end: 20130903
  4. FERROGRAD C [Concomitant]
     Indication: IRON DEFICIENCY ANAEMIA
     Dosage: UNK
     Route: 065
     Dates: start: 201308
  5. FOLIC ACID [Concomitant]
     Indication: IRON DEFICIENCY ANAEMIA
     Dosage: UNK
     Route: 065

REACTIONS (5)
  - Angioedema [Recovering/Resolving]
  - Erythema [Recovering/Resolving]
  - Pruritus [Recovering/Resolving]
  - Rash generalised [Recovering/Resolving]
  - Urticaria [Recovering/Resolving]
